FAERS Safety Report 5898002-1 (Version None)
Quarter: 2008Q3

REPORT INFORMATION
  Report Type: 
  Country: None (occurrence: None)
  Receive Date: 20080924
  Receipt Date: 20080924
  Transmission Date: 20090109
  Serious: Yes (Life-Threatening, Hospitalization)
  Sender: FDA-Public Use
  Company Number: None

PATIENT
  Age: 49 Year
  Sex: Male
  Weight: 110.9 kg

DRUGS (2)
  1. MORPHINE [Suspect]
     Indication: CANCER PAIN
     Dosage: 30 MG OTHER PO
     Route: 048
     Dates: start: 20080729, end: 20080804
  2. OXYCODONE AND ACETAMINOPHEN [Suspect]
     Indication: CANCER PAIN
     Dosage: 1 MG OTHER PO
     Route: 048
     Dates: start: 20080708, end: 20080804

REACTIONS (8)
  - AGITATION [None]
  - CHEST PAIN [None]
  - HYPOVENTILATION [None]
  - MENTAL STATUS CHANGES [None]
  - OVERDOSE [None]
  - PAIN [None]
  - THIRST [None]
  - UNRESPONSIVE TO STIMULI [None]
